FAERS Safety Report 6338229-8 (Version None)
Quarter: 2009Q3

REPORT INFORMATION
  Report Type: 
  Country: None (occurrence: None)
  Receive Date: 20090902
  Receipt Date: 20090820
  Transmission Date: 20100115
  Serious: Yes (Hospitalization)
  Sender: FDA-Public Use
  Company Number: PHHO2009US08586

PATIENT
  Sex: Male
  Weight: 87.528 kg

DRUGS (8)
  1. RAD 666 RAD+TAB [Suspect]
     Indication: RENAL CELL CARCINOMA
     Dosage: 35 MG WEEKLY
     Route: 048
     Dates: start: 20081215, end: 20090629
  2. SORAFENIB [Suspect]
     Indication: RENAL CELL CARCINOMA
     Dosage: 400 MG, QD
     Route: 048
     Dates: start: 20081215, end: 20090703
  3. ATENOLOL [Concomitant]
  4. NEXIUM [Concomitant]
  5. LISINOPRIL [Concomitant]
  6. SIMVASTATIN [Concomitant]
  7. TENORMIN [Concomitant]
  8. ASPIRIN [Concomitant]

REACTIONS (9)
  - ASTHENIA [None]
  - COLITIS [None]
  - DIARRHOEA HAEMORRHAGIC [None]
  - DIVERTICULUM [None]
  - GASTROINTESTINAL HAEMORRHAGE [None]
  - HAEMOGLOBIN DECREASED [None]
  - HAEMOPTYSIS [None]
  - NAUSEA [None]
  - VOMITING [None]
